FAERS Safety Report 21189573 (Version 1)
Quarter: 2022Q3

REPORT INFORMATION
  Report Type: Spontaneous
  Country: US (occurrence: None)
  Receive Date: 20220808
  Receipt Date: 20220808
  Transmission Date: 20221027
  Serious: Yes (Other)
  Sender: FDA-Public Use
  Company Number: None

PATIENT
  Age: 71 Year
  Sex: Female
  Weight: 69.3 kg

DRUGS (9)
  1. PAXLOVID [Suspect]
     Active Substance: NIRMATRELVIR\RITONAVIR
     Indication: COVID-19
     Dosage: OTHER QUANTITY : 1 TABLET(S);?FREQUENCY : TWICE A DAY;?
     Route: 048
     Dates: start: 20220727, end: 20220729
  2. VERAPAMIL [Concomitant]
     Active Substance: VERAPAMIL HYDROCHLORIDE
  3. EZETIMIBE [Concomitant]
     Active Substance: EZETIMIBE
  4. K-force : Vit K2 ? 180 mcg and Vit D3 5,000 iu [Concomitant]
  5. OrthoMolecular [Concomitant]
  6. malate [Concomitant]
  7. MAGNESIU GLCINATE [Concomitant]
  8. Innovix labs Vit B-2 (riboflavin) [Concomitant]
  9. Best Naturals Zinc sulfate 7.5 mg [Concomitant]

REACTIONS (5)
  - Angioedema [None]
  - Ocular hyperaemia [None]
  - Lacrimation increased [None]
  - Oropharyngeal pain [None]
  - Dysphonia [None]

NARRATIVE: CASE EVENT DATE: 20220729
